FAERS Safety Report 5192386-8 (Version None)
Quarter: 2006Q4

REPORT INFORMATION
  Report Type: 
  Country: None (occurrence: None)
  Receive Date: 20061227
  Receipt Date: 20061215
  Transmission Date: 20070319
  Serious: Yes (Other)
  Sender: FDA-Public Use
  Company Number: US-PFIZER INC-2006154914

PATIENT
  Sex: Male

DRUGS (3)
  1. ALPROSTADIL POWDER, STERILE [Suspect]
     Dates: start: 20061015, end: 20061116
  2. KALETRA [Suspect]
     Indication: HIV INFECTION
     Route: 048
  3. EMCITRICITABINE/TENOFAVIR DISOPROXIL FUMARATE [Suspect]
     Indication: HIV INFECTION
     Route: 048

REACTIONS (1)
  - BLOOD CREATINE PHOSPHOKINASE INCREASED [None]
